FAERS Safety Report 9643855 (Version 1)
Quarter: 2013Q4

REPORT INFORMATION
  Report Type: Spontaneous
  Country: US (occurrence: US)
  Receive Date: 20131024
  Receipt Date: 20131024
  Transmission Date: 20140711
  Serious: No
  Sender: FDA-Public Use
  Company Number: US-ASTRAZENECA-2013SE73879

PATIENT
  Age: 65 Year
  Sex: Female
  Weight: 99.8 kg

DRUGS (3)
  1. CRESTOR [Suspect]
     Indication: BLOOD CHOLESTEROL INCREASED
     Route: 048
     Dates: start: 1998
  2. MULTIVITAMIN [Concomitant]
     Indication: VITAMIN SUPPLEMENTATION
  3. CINNAMON [Concomitant]
     Indication: BLOOD GLUCOSE ABNORMAL

REACTIONS (3)
  - Glucose tolerance impaired [Not Recovered/Not Resolved]
  - Overweight [Not Recovered/Not Resolved]
  - Blood test abnormal [Unknown]
